FAERS Safety Report 9377414 (Version 1)
Quarter: 2013Q3

REPORT INFORMATION
  Report Type: Spontaneous
  Country: US (occurrence: US)
  Receive Date: 20130701
  Receipt Date: 20130701
  Transmission Date: 20140515
  Serious: Yes (Other)
  Sender: FDA-Public Use
  Company Number: US-SANOFI-AVENTIS-2013SA053504

PATIENT
  Age: 27 Year
  Sex: Female
  Weight: 93.89 kg

DRUGS (8)
  1. LOVENOX [Suspect]
     Indication: ANTIPHOSPHOLIPID SYNDROME
     Dates: start: 20100901, end: 20101213
  2. LOVENOX [Suspect]
     Indication: PREGNANCY
     Dates: start: 20100901, end: 20101213
  3. LOVENOX [Suspect]
     Indication: ANTIPHOSPHOLIPID SYNDROME
     Dates: start: 20110805, end: 20110927
  4. LOVENOX [Suspect]
     Indication: PREGNANCY
     Dates: start: 20110805, end: 20110927
  5. LABETALOL [Concomitant]
     Indication: HYPERTENSION
     Route: 048
     Dates: start: 201009, end: 20130220
  6. VITAMINS [Concomitant]
     Dates: start: 2010
  7. COUMADIN [Concomitant]
     Indication: ANTIPHOSPHOLIPID SYNDROME
     Dates: start: 2007, end: 201009
  8. HEPARIN [Concomitant]
     Indication: ANTIPHOSPHOLIPID SYNDROME
     Dosage: DOSE:7500 UNIT(S)
     Dates: start: 20121031, end: 20130202

REACTIONS (4)
  - Foetal death [Unknown]
  - Exposure during pregnancy [Unknown]
  - Injection site discomfort [Unknown]
  - Injection site pain [Unknown]
